FAERS Safety Report 10786461 (Version 1)
Quarter: 2015Q1

REPORT INFORMATION
  Report Type: Spontaneous
  Country: US (occurrence: None)
  Receive Date: 20150210
  Receipt Date: 20150210
  Transmission Date: 20150721
  Serious: No
  Sender: FDA-Public Use
  Company Number: None

PATIENT
  Age: 51 Year
  Sex: Female
  Weight: 53.07 kg

DRUGS (1)
  1. LETROZOLE 2.5 MG [Suspect]
     Active Substance: LETROZOLE
     Indication: BREAST CANCER
     Dosage: 1 PILL ONCE DAILY BY MOUTH
     Route: 048
     Dates: start: 20140618, end: 20140626

REACTIONS (4)
  - Dizziness [None]
  - Hearing impaired [None]
  - Tinnitus [None]
  - Pain [None]

NARRATIVE: CASE EVENT DATE: 20140626
